FAERS Safety Report 21558640 (Version 3)
Quarter: 2022Q4

REPORT INFORMATION
  Report Type: Spontaneous
  Country: US (occurrence: US)
  Receive Date: 20221107
  Receipt Date: 20221211
  Transmission Date: 20230112
  Serious: No
  Sender: FDA-Public Use
  Company Number: US-JNJFOC-20221053470

PATIENT
  Sex: Male

DRUGS (3)
  1. SIMPONI [Suspect]
     Active Substance: GOLIMUMAB
     Indication: Psoriatic arthropathy
     Dosage: ONE INJECTION EVERY 4 WEEKS
     Route: 058
     Dates: end: 202210
  2. CELEBREX [Concomitant]
     Active Substance: CELECOXIB
     Indication: Osteoarthritis
  3. METFORMIN [Concomitant]
     Active Substance: METFORMIN HYDROCHLORIDE
     Indication: Type 2 diabetes mellitus

REACTIONS (1)
  - Drug ineffective [Unknown]
